FAERS Safety Report 11544850 (Version 2)
Quarter: 2015Q4

REPORT INFORMATION
  Report Type: Spontaneous
  Country: US (occurrence: US)
  Receive Date: 20150924
  Receipt Date: 20151002
  Transmission Date: 20160304
  Serious: Yes (Hospitalization)
  Sender: FDA-Public Use
  Company Number: US-ACTAVIS-2015-20334

PATIENT
  Age: 66 Year
  Sex: Male

DRUGS (4)
  1. DENOSUMAB [Suspect]
     Active Substance: DENOSUMAB
     Indication: CHEMOTHERAPY
     Dosage: 120 MG, SINGLE
     Route: 058
  2. LEUPRORELIN [Suspect]
     Active Substance: LEUPROLIDE ACETATE
     Indication: CHEMOTHERAPY
     Dosage: 22.5 MG, CYCLICAL (6 CYCLES)
     Route: 058
  3. ETOPOSIDE (WATSON LABORATORIES) [Suspect]
     Active Substance: ETOPOSIDE
     Indication: CHEMOTHERAPY
     Dosage: 100 MG/M2, CYCLICAL (6 CYCLES)
     Route: 042
  4. CISPLATIN (UNKNOWN) [Suspect]
     Active Substance: CISPLATIN
     Indication: CHEMOTHERAPY
     Dosage: 30 MG/M2, CYCLICAL (6 CYCLES)
     Route: 042

REACTIONS (2)
  - Hypomagnesaemia [Unknown]
  - Anaemia [Unknown]
